FAERS Safety Report 6404115-8 (Version None)
Quarter: 2009Q4

REPORT INFORMATION
  Report Type: 
  Country: None (occurrence: None)
  Receive Date: 20091016
  Receipt Date: 20090916
  Transmission Date: 20100525
  Serious: No
  Sender: FDA-Public Use
  Company Number: CA-ALEXION-A200900762

PATIENT
  Sex: Male

DRUGS (9)
  1. SOLIRIS [Suspect]
     Indication: PAROXYSMAL NOCTURNAL HAEMOGLOBINURIA
     Dosage: 600 MG, QW
     Route: 042
     Dates: start: 20090819, end: 20090916
  2. PREDNISONE [Concomitant]
     Indication: HAEMOLYSIS
     Dosage: 20 MG, 1-2, PRN
     Route: 048
     Dates: end: 20090902
  3. PREDNISONE [Concomitant]
     Dosage: 10 MG, QOD
     Route: 048
     Dates: start: 20090902
  4. DANAZOL [Concomitant]
     Dosage: 400 MG, QD
     Route: 048
  5. IRON [Concomitant]
     Dosage: 300 MG, QD
     Route: 048
  6. FOLIC ACID [Concomitant]
     Dosage: 5 MG, QD
     Route: 048
  7. VITAMIN A [Concomitant]
     Dosage: 8000 UT, QD
     Route: 048
  8. VITAMIN B12                        /00056201/ [Concomitant]
     Dosage: 1000 UT, QMONTH
     Route: 048
  9. CELEXA [Concomitant]
     Indication: DEPRESSION
     Dosage: UNK
     Route: 048

REACTIONS (3)
  - EYE PAIN [None]
  - INFUSION RELATED REACTION [None]
  - OCULAR HYPERAEMIA [None]
